FAERS Safety Report 5780072-2 (Version None)
Quarter: 2008Q2

REPORT INFORMATION
  Report Type: 
  Country: None (occurrence: None)
  Receive Date: 20080620
  Receipt Date: 20080613
  Transmission Date: 20081010
  Serious: Yes (Other)
  Sender: FDA-Public Use
  Company Number: JP-AVENTIS-200811836JP

PATIENT
  Age: 90 Year
  Sex: Female

DRUGS (3)
  1. LANTUS [Suspect]
     Dosage: DOSE: 4 UNITS
     Route: 058
     Dates: start: 20080611
  2. OPTICLIK (INSULIN INJECTION PEN) [Suspect]
     Dates: start: 20080611
  3. UNKNOWN DRUG [Concomitant]
     Route: 048

REACTIONS (2)
  - HALLUCINATION [None]
  - PAIN IN EXTREMITY [None]
